FAERS Safety Report 17952795 (Version 1)
Quarter: 2020Q2

REPORT INFORMATION
  Report Type: Spontaneous
  Country: FR (occurrence: FR)
  Receive Date: 20200627
  Receipt Date: 20200627
  Transmission Date: 20200714
  Serious: Yes (Hospitalization)
  Sender: FDA-Public Use
  Company Number: FR-ASTRAZENECA-2020SE80640

PATIENT
  Age: 37 Year
  Sex: Male

DRUGS (5)
  1. XEROQUEL [Suspect]
     Active Substance: QUETIAPINE FUMARATE
     Indication: INTENTIONAL OVERDOSE
     Dosage: 6.0DF ONCE/SINGLE ADMINISTRATION
     Route: 048
     Dates: start: 20200107, end: 20200107
  2. PROZAC [Suspect]
     Active Substance: FLUOXETINE HYDROCHLORIDE
     Indication: INTENTIONAL OVERDOSE
     Dosage: 5.0DF ONCE/SINGLE ADMINISTRATION
     Route: 048
     Dates: start: 20200107, end: 20200107
  3. COCAINE [Suspect]
     Active Substance: COCAINE
     Indication: POISONING DELIBERATE
     Dosage: 1.0G ONCE/SINGLE ADMINISTRATION
     Route: 065
     Dates: start: 20200107, end: 20200107
  4. LEXOMIL [Suspect]
     Active Substance: BROMAZEPAM
     Indication: INTENTIONAL OVERDOSE
     Dosage: 5.0DF ONCE/SINGLE ADMINISTRATION
     Route: 048
     Dates: start: 20200107, end: 20200107
  5. NOZINAN [Suspect]
     Active Substance: LEVOMEPROMAZINE
     Indication: INTENTIONAL OVERDOSE
     Dosage: 6.0DF ONCE/SINGLE ADMINISTRATION
     Route: 048
     Dates: start: 20200107, end: 20200107

REACTIONS (3)
  - Poisoning deliberate [Recovered/Resolved]
  - Electrocardiogram QT prolonged [Unknown]
  - Somnolence [Recovered/Resolved]

NARRATIVE: CASE EVENT DATE: 20200107
